FAERS Safety Report 8834748 (Version 2)
Quarter: 2012Q4

REPORT INFORMATION
  Report Type: Spontaneous
  Country: DE (occurrence: None)
  Receive Date: 20121009
  Receipt Date: 20121031
  Transmission Date: 20130627
  Serious: Yes (Other)
  Sender: FDA-Public Use
  Company Number: DE-1194333

PATIENT
  Age: 74 Year
  Sex: Female

DRUGS (2)
  1. BSS [Suspect]
     Indication: CATARACT OPERATION COMPLICATION
     Dosage: (Intraocular)
     Route: 031
     Dates: start: 20120830, end: 20120830
  2. HEALON [Concomitant]

REACTIONS (2)
  - Anterior chamber inflammation [None]
  - Product quality issue [None]
